FAERS Safety Report 6204265-5 (Version None)
Quarter: 2009Q2

REPORT INFORMATION
  Report Type: 
  Country: None (occurrence: None)
  Receive Date: 20090527
  Receipt Date: 20090525
  Transmission Date: 20091009
  Serious: Yes (Hospitalization)
  Sender: FDA-Public Use
  Company Number: FR-WYE-G02939309

PATIENT
  Sex: Male
  Weight: 30 kg

DRUGS (3)
  1. ADVIL [Suspect]
     Indication: PYREXIA
     Dosage: 200 MG TOTAL DAILY
     Route: 048
     Dates: start: 20081217, end: 20081217
  2. ADVIL [Suspect]
     Dosage: 400 MG TOTAL DAILY
     Route: 048
     Dates: start: 20081218, end: 20081218
  3. ADVIL [Suspect]
     Dosage: 200 MG TOTAL DAILY
     Route: 048
     Dates: start: 20081219, end: 20081219

REACTIONS (7)
  - GENERAL PHYSICAL HEALTH DETERIORATION [None]
  - GENITAL LESION [None]
  - INCORRECT DRUG DOSAGE FORM ADMINISTERED [None]
  - KAWASAKI'S DISEASE [None]
  - MOUTH ULCERATION [None]
  - RASH SCARLATINIFORM [None]
  - RENAL FAILURE ACUTE [None]
